FAERS Safety Report 5094551-7 (Version None)
Quarter: 2006Q3

REPORT INFORMATION
  Report Type: 
  Country: None (occurrence: None)
  Receive Date: 20060731
  Receipt Date: 20060424
  Transmission Date: 20061208
  Serious: No
  Sender: FDA-Public Use
  Company Number: 2006PV012600

PATIENT
  Age: 59 Year
  Sex: Male
  Weight: 99.7913 kg

DRUGS (5)
  1. BYETTA [Suspect]
     Indication: DIABETES MELLITUS NON-INSULIN-DEPENDENT
     Dosage: 10 MCG; SC; SEE IMAGE
     Route: 058
     Dates: start: 20060323, end: 20060423
  2. BYETTA [Suspect]
     Indication: DIABETES MELLITUS NON-INSULIN-DEPENDENT
     Dosage: 10 MCG; SC; SEE IMAGE
     Route: 058
     Dates: start: 20060424
  3. METFORMIN HCL [Concomitant]
  4. GLIPIZIDE [Concomitant]
  5. CORAL CALCIUM [Concomitant]

REACTIONS (3)
  - DIARRHOEA [None]
  - INJECTION SITE HAEMORRHAGE [None]
  - WEIGHT DECREASED [None]
